FAERS Safety Report 23056228 (Version 1)
Quarter: 2023Q4

REPORT INFORMATION
  Report Type: Spontaneous
  Country: None (occurrence: US)
  Receive Date: 20231011
  Receipt Date: 20231011
  Transmission Date: 20240110
  Serious: No
  Sender: FDA-Public Use
  Company Number: US-Armstrong Pharmaceuticals, Inc.-2146922

PATIENT
  Age: 25 Year
  Sex: Female

DRUGS (4)
  1. PRIMATENE MIST [Suspect]
     Active Substance: EPINEPHRINE
     Indication: Asthma
     Route: 055
  2. Oral birth control (unspecified) [Concomitant]
  3. VYVANSE [Concomitant]
     Active Substance: LISDEXAMFETAMINE DIMESYLATE
  4. OXCARBAZEPINE [Concomitant]
     Active Substance: OXCARBAZEPINE

REACTIONS (1)
  - Tremor [Recovered/Resolved]

NARRATIVE: CASE EVENT DATE: 20230607
